FAERS Safety Report 13891384 (Version 1)
Quarter: 2017Q3

REPORT INFORMATION
  Report Type: Spontaneous
  Country: DZ (occurrence: DZ)
  Receive Date: 20170822
  Receipt Date: 20170822
  Transmission Date: 20171127
  Serious: Yes (Congenital Anomaly, Other)
  Sender: FDA-Public Use
  Company Number: DZ-NOVOPROD-559782

PATIENT
  Sex: Female
  Weight: 3.1 kg

DRUGS (1)
  1. NOVORAPID [Suspect]
     Active Substance: INSULIN ASPART
     Indication: PRODUCT USED FOR UNKNOWN INDICATION
     Dosage: 2 INJECTIONS PER DAY
     Route: 064
     Dates: end: 20170418

REACTIONS (2)
  - Foetal exposure during pregnancy [Recovered/Resolved]
  - Kidney malformation [Unknown]
